FAERS Safety Report 9413276 (Version 2)
Quarter: 2013Q3

REPORT INFORMATION
  Report Type: Spontaneous
  Country: JP (occurrence: JP)
  Receive Date: 20130722
  Receipt Date: 20130729
  Transmission Date: 20140515
  Serious: Yes (Death)
  Sender: FDA-Public Use
  Company Number: JP-ROCHE-1197785

PATIENT
  Age: 64 Year
  Sex: Female

DRUGS (5)
  1. RITUXIMAB [Suspect]
     Indication: B-CELL LYMPHOMA
     Route: 042
     Dates: start: 20110801
  2. RITUXIMAB [Suspect]
     Route: 042
     Dates: start: 20110808
  3. RITUXIMAB [Suspect]
     Route: 042
     Dates: start: 20110822
  4. RITUXIMAB [Suspect]
     Route: 042
     Dates: start: 20110829
  5. BENDAMUSTINE [Suspect]
     Indication: B-CELL LYMPHOMA
     Route: 065

REACTIONS (1)
  - Cerebral infarction [Fatal]
